FAERS Safety Report 6830738-8 (Version None)
Quarter: 2010Q3

REPORT INFORMATION
  Report Type: 
  Country: None (occurrence: None)
  Receive Date: 20100712
  Receipt Date: 20100706
  Transmission Date: 20110219
  Serious: Yes (Death, Other)
  Sender: FDA-Public Use
  Company Number: TR-ELI_LILLY_AND_COMPANY-TR201007001376

PATIENT
  Sex: Male

DRUGS (1)
  1. HUMULIN R [Suspect]
     Dosage: UNK UNK, 4/D
     Route: 058
     Dates: end: 20100528

REACTIONS (2)
  - ROAD TRAFFIC ACCIDENT [None]
  - TRAUMATIC HAEMORRHAGE [None]
